FAERS Safety Report 7098445-7 (Version None)
Quarter: 2010Q4

REPORT INFORMATION
  Report Type: 
  Country: None (occurrence: None)
  Receive Date: 20101112
  Receipt Date: 20101102
  Transmission Date: 20110411
  Serious: No
  Sender: FDA-Public Use
  Company Number: US-PFIZER INC-2010139613

PATIENT
  Sex: Female
  Weight: 90.703 kg

DRUGS (1)
  1. CLINDAMYCIN PHOSPHATE [Suspect]
     Indication: SKIN IRRITATION
     Dosage: UNK
     Route: 061
     Dates: start: 20100901, end: 20100901

REACTIONS (2)
  - BURNING SENSATION [None]
  - SKIN IRRITATION [None]
